FAERS Safety Report 13237247 (Version 11)
Quarter: 2018Q4

REPORT INFORMATION
  Report Type: Spontaneous
  Country: US (occurrence: US)
  Receive Date: 20170215
  Receipt Date: 20181025
  Transmission Date: 20190204
  Serious: Yes (Other)
  Sender: FDA-Public Use
  Company Number: US-ACTELION-A-US2017-149539

PATIENT
  Age: 54 Year
  Sex: Female
  Weight: 71.2 kg

DRUGS (8)
  1. OPSUMIT [Suspect]
     Active Substance: MACITENTAN
     Indication: PULMONARY ARTERIAL HYPERTENSION
     Dosage: 10 MG, QD
     Route: 048
     Dates: start: 20170123
  2. FLAGYL [Interacting]
     Active Substance: METRONIDAZOLE\METRONIDAZOLE HYDROCHLORIDE
     Indication: INFECTION PARASITIC
     Route: 065
  3. REVATIO [Concomitant]
     Active Substance: SILDENAFIL CITRATE
     Dosage: UNK
  4. NORVASC [Concomitant]
     Active Substance: AMLODIPINE BESYLATE
  5. SYNTHROID [Concomitant]
     Active Substance: LEVOTHYROXINE SODIUM
     Dosage: 1.75 UNK, UNK
  6. OPSUMIT [Interacting]
     Active Substance: MACITENTAN
     Dosage: UNK
     Route: 048
  7. SILDENAFIL. [Concomitant]
     Active Substance: SILDENAFIL
  8. WELLBUTRIN [Concomitant]
     Active Substance: BUPROPION HYDROCHLORIDE
     Dosage: 150 MG, UNK

REACTIONS (32)
  - Nasal congestion [Unknown]
  - Dyspnoea [Unknown]
  - Fatigue [Unknown]
  - Product dose omission [Unknown]
  - Oedema [Unknown]
  - Eye pruritus [Unknown]
  - Cardiac septal defect [Unknown]
  - Oropharyngeal pain [Unknown]
  - Arthritis [Unknown]
  - Insomnia [Unknown]
  - Peripheral swelling [Unknown]
  - Throat irritation [Unknown]
  - Erythema of eyelid [Unknown]
  - Back injury [Unknown]
  - Drug interaction [Unknown]
  - Cough [Not Recovered/Not Resolved]
  - Rash [Recovering/Resolving]
  - Restless legs syndrome [Unknown]
  - Pain [Unknown]
  - Diarrhoea [Unknown]
  - Abdominal distension [Unknown]
  - Increased upper airway secretion [Unknown]
  - Swelling [Recovering/Resolving]
  - Oxygen saturation decreased [Recovering/Resolving]
  - Ocular hyperaemia [Unknown]
  - Herpes zoster [Recovered/Resolved]
  - Vomiting [Not Recovered/Not Resolved]
  - Infection parasitic [Unknown]
  - Rhinorrhoea [Unknown]
  - Lacrimation increased [Unknown]
  - Hypoaesthesia [Unknown]
  - Neck injury [Unknown]

NARRATIVE: CASE EVENT DATE: 201701
